FAERS Safety Report 6257343-9 (Version None)
Quarter: 2009Q3

REPORT INFORMATION
  Report Type: 
  Country: None (occurrence: None)
  Receive Date: 20090706
  Receipt Date: 20090624
  Transmission Date: 20100115
  Serious: Yes (Hospitalization)
  Sender: FDA-Public Use
  Company Number: PHHY2009JP26279

PATIENT
  Age: 73 Year
  Sex: Male

DRUGS (7)
  1. STARSIS [Suspect]
     Indication: TYPE 2 DIABETES MELLITUS
     Dosage: 360 MG/DAY
     Route: 048
  2. DOGMATYL [Suspect]
     Dosage: 200MG DAILY
     Route: 048
  3. FAMOTIDINE [Concomitant]
     Dosage: 80 MG, UNK
  4. LOXOPROFEN SODIUM [Concomitant]
     Dosage: 360 MG, UNK
  5. SODIUM CHLORIDE [Concomitant]
     Dosage: 18 G, UNK
  6. MELBIN [Concomitant]
     Dosage: 1000 MG, UNK
  7. ACINON [Concomitant]
     Dosage: 300 MG, UNK

REACTIONS (2)
  - HYPONATRAEMIA [None]
  - INAPPROPRIATE ANTIDIURETIC HORMONE SECRETION [None]
